FAERS Safety Report 13367718 (Version 1)
Quarter: 2017Q1

REPORT INFORMATION
  Report Type: Spontaneous
  Country: US (occurrence: US)
  Receive Date: 20170323
  Receipt Date: 20170323
  Transmission Date: 20170429
  Serious: Yes (Disabling)
  Sender: FDA-Public Use
  Company Number: None

PATIENT
  Age: 57 Year
  Sex: Female
  Weight: 40.5 kg

DRUGS (4)
  1. PROLIA [Suspect]
     Active Substance: DENOSUMAB
     Indication: OSTEOPOROSIS
     Dosage: EVERY 6 MONTHS;INJECTED INTO ARM?
     Dates: start: 20160411, end: 20170323
  2. CLARITEN [Concomitant]
  3. VITAMIN D [Concomitant]
     Active Substance: CHOLECALCIFEROL
  4. ATIVAN [Concomitant]
     Active Substance: LORAZEPAM

REACTIONS (6)
  - Pain in extremity [None]
  - Bone pain [None]
  - Myalgia [None]
  - Arthralgia [None]
  - Back pain [None]
  - Pain [None]

NARRATIVE: CASE EVENT DATE: 20170323
